FAERS Safety Report 9982498 (Version 1)
Quarter: 2014Q1

REPORT INFORMATION
  Report Type: Spontaneous
  Country: US (occurrence: None)
  Receive Date: 20140306
  Receipt Date: 20140306
  Transmission Date: 20141002
  Serious: Yes (Other)
  Sender: FDA-Public Use
  Company Number: None

PATIENT
  Age: 72 Year
  Sex: Male

DRUGS (1)
  1. ZYTIGA 250 MG. TAKE 4 DAILY JANSSEN [Suspect]
     Dosage: 250MG, TAKE 4 IN AM, ORAL
     Route: 048
     Dates: start: 20140220, end: 20140301

REACTIONS (1)
  - Blood urine present [None]
